FAERS Safety Report 21583173 (Version 1)
Quarter: 2022Q4

REPORT INFORMATION
  Report Type: Spontaneous
  Country: US (occurrence: None)
  Receive Date: 20221110
  Receipt Date: 20221110
  Transmission Date: 20230112
  Serious: Yes (Life-Threatening, Hospitalization, Other)
  Sender: FDA-Public Use
  Company Number: None

PATIENT
  Age: 49 Year
  Sex: Male

DRUGS (1)
  1. AMILORIDE HCL [Suspect]
     Active Substance: AMILORIDE HYDROCHLORIDE
     Indication: Hypertension
     Dosage: 2 TAB BID PO?
     Route: 048
     Dates: start: 20220728, end: 20220801

REACTIONS (3)
  - Hyperkalaemia [None]
  - Palpitations [None]
  - Diarrhoea [None]

NARRATIVE: CASE EVENT DATE: 20220801
